FAERS Safety Report 14972918 (Version 1)
Quarter: 2018Q3

REPORT INFORMATION
  Report Type: Spontaneous
  Country: US (occurrence: US)
  Receive Date: 20180605
  Receipt Date: 20180605
  Transmission Date: 20181010
  Serious: No
  Sender: FDA-Public Use
  Company Number: US-AUROBINDO-AUR-APU-2017-34126

PATIENT
  Sex: Male
  Weight: 81.1 kg

DRUGS (10)
  1. VENLAFAXINE HYDROCHLORIDE EXTENDED?RELEASE CAPSULES 37.5MG [Suspect]
     Active Substance: VENLAFAXINE HYDROCHLORIDE
     Indication: ANXIETY
  2. CREATINE [Suspect]
     Active Substance: CREATINE
     Indication: PRODUCT USED FOR UNKNOWN INDICATION
     Route: 065
  3. L?ARGININE                         /00126101/ [Suspect]
     Active Substance: ARGININE
     Indication: PRODUCT USED FOR UNKNOWN INDICATION
     Route: 065
  4. L?LYSINE /00919901/ [Suspect]
     Active Substance: LYSINE
     Indication: PRODUCT USED FOR UNKNOWN INDICATION
     Route: 065
  5. L?ARGININE                         /00126101/ [Suspect]
     Active Substance: ARGININE
     Indication: ANXIETY
  6. CREATINE [Suspect]
     Active Substance: CREATINE
     Indication: ANXIETY
  7. TRAZODONE [Concomitant]
     Active Substance: TRAZODONE HYDROCHLORIDE
     Indication: INSOMNIA
     Dosage: 50MG TABLET ORAL EVERY NIGHT
  8. L?LYSINE                           /00919901/ [Suspect]
     Active Substance: LYSINE
     Indication: ANXIETY
  9. VENLAFAXINE HYDROCHLORIDE EXTENDED?RELEASE CAPSULES 37.5MG [Suspect]
     Active Substance: VENLAFAXINE HYDROCHLORIDE
     Indication: DEPRESSION
     Dosage: 37.5 MG, DAILY
     Route: 048
     Dates: start: 201609, end: 20170424
  10. TRAZODONE [Concomitant]
     Active Substance: TRAZODONE HYDROCHLORIDE
     Indication: ANXIETY

REACTIONS (13)
  - Depression [Unknown]
  - Headache [Unknown]
  - Intentional product use issue [None]
  - Dyspnoea [Recovered/Resolved]
  - Bowel movement irregularity [Unknown]
  - Feeling abnormal [Unknown]
  - Abdominal distension [Unknown]
  - Product substitution issue [Unknown]
  - Gastric disorder [Recovered/Resolved]
  - Drug administration error [Unknown]
  - Fatigue [Recovering/Resolving]
  - Intentional dose omission [None]
  - Head discomfort [None]

NARRATIVE: CASE EVENT DATE: 2016
